FAERS Safety Report 7909400-6 (Version None)
Quarter: 2011Q4

REPORT INFORMATION
  Report Type: 
  Country: None (occurrence: None)
  Receive Date: 20111111
  Receipt Date: 20111104
  Transmission Date: 20120403
  Serious: Yes (Life-Threatening, Hospitalization, Disabling, Other)
  Sender: FDA-Public Use
  Company Number: US-PFIZER INC-2011182410

PATIENT
  Sex: Male

DRUGS (12)
  1. CHANTIX [Suspect]
     Indication: SMOKING CESSATION THERAPY
     Dosage: 0.5 MG, 1X/DAY
     Route: 048
     Dates: start: 20090714, end: 20090716
  2. CHANTIX [Suspect]
     Dosage: 0.5 MG TWO TABLETS TWICE DAILY
     Route: 048
     Dates: start: 20090811, end: 20090903
  3. CHANTIX [Suspect]
     Dosage: 1 MG, 2X/DAY
     Route: 048
     Dates: start: 20091116, end: 20091216
  4. CHANTIX [Suspect]
     Dosage: 0.5 MG TWO TABLETS TWICE DAILY
     Route: 048
     Dates: start: 20090721, end: 20090813
  5. CHANTIX [Suspect]
     Dosage: 1 MG, 2X/DAY
     Route: 048
     Dates: start: 20090804, end: 20090903
  6. CHANTIX [Suspect]
     Dosage: 1 MG, 2X/DAY
     Route: 048
     Dates: start: 20100113, end: 20100212
  7. CHANTIX [Suspect]
     Dosage: 1 MG, 2X/DAY
     Route: 048
     Dates: start: 20100611
  8. CHANTIX [Suspect]
     Dosage: 0.5 MG, 2X/DAY
     Route: 048
     Dates: start: 20090717, end: 20090720
  9. CHANTIX [Suspect]
     Dosage: 0.5 MG, 2X/DAY
     Route: 048
     Dates: start: 20090807, end: 20090810
  10. CHANTIX [Suspect]
     Dosage: 1 MG, 2X/DAY
     Route: 048
     Dates: start: 20100311, end: 20100410
  11. CHANTIX [Suspect]
     Dosage: 0.5 MG, 1X/DAY
     Route: 048
     Dates: start: 20090804, end: 20090806
  12. CHANTIX [Suspect]
     Dosage: 1 MG, 2X/DAY
     Route: 048
     Dates: start: 20090930, end: 20091030

REACTIONS (7)
  - NERVE INJURY [None]
  - PERONEAL NERVE PALSY [None]
  - ANAEMIA [None]
  - LOSS OF CONSCIOUSNESS [None]
  - HIP FRACTURE [None]
  - MENISCUS LESION [None]
  - MUSCLE INJURY [None]
